FAERS Safety Report 14015353 (Version 2)
Quarter: 2017Q4

REPORT INFORMATION
  Report Type: Spontaneous
  Country: US (occurrence: US)
  Receive Date: 20170927
  Receipt Date: 20171018
  Transmission Date: 20180321
  Serious: No
  Sender: FDA-Public Use
  Company Number: PHEH2017US031149

PATIENT
  Age: 40 Year
  Sex: Female
  Weight: 157 kg

DRUGS (2)
  1. AFINITOR [Suspect]
     Active Substance: EVEROLIMUS
     Indication: BREAST CANCER
     Dosage: 10 MG, QD
     Route: 048
     Dates: start: 20170727
  2. AFINITOR [Suspect]
     Active Substance: EVEROLIMUS
     Indication: BURNING SENSATION MUCOSAL

REACTIONS (2)
  - Stomatitis [Recovered/Resolved with Sequelae]
  - Burning sensation mucosal [Unknown]

NARRATIVE: CASE EVENT DATE: 201708
